FAERS Safety Report 13081509 (Version 3)
Quarter: 2017Q1

REPORT INFORMATION
  Report Type: Spontaneous
  Country: JP (occurrence: JP)
  Receive Date: 20170103
  Receipt Date: 20170308
  Transmission Date: 20170428
  Serious: Yes (Hospitalization)
  Sender: FDA-Public Use
  Company Number: JP-ALLERGAN-1700019US

PATIENT
  Age: 52 Year
  Sex: Male

DRUGS (6)
  1. REFLEX [Interacting]
     Active Substance: MIRTAZAPINE
     Indication: DEPRESSED MOOD
     Dosage: 15 MG, QD
     Route: 048
     Dates: start: 20160909, end: 20161020
  2. ASENAPINE MALEATE - BP [Suspect]
     Active Substance: ASENAPINE MALEATE
     Indication: SCHIZOPHRENIA
     Dosage: 5 MG, BID
     Route: 060
     Dates: start: 20160728, end: 20160803
  3. ASENAPINE MALEATE - BP [Interacting]
     Active Substance: ASENAPINE MALEATE
     Indication: HALLUCINATION, AUDITORY
     Dosage: 10 MG, BID
     Route: 060
     Dates: start: 20160804, end: 20161222
  4. ASENAPINE MALEATE - BP [Interacting]
     Active Substance: ASENAPINE MALEATE
     Indication: ANXIETY
  5. REFLEX [Interacting]
     Active Substance: MIRTAZAPINE
     Indication: SUICIDAL IDEATION
     Dosage: 30 MG, QD
     Route: 048
     Dates: start: 20161021, end: 20161222
  6. VALPROATE SODIUM. [Concomitant]
     Active Substance: VALPROATE SODIUM
     Indication: PRODUCT USED FOR UNKNOWN INDICATION
     Dosage: UNK
     Route: 065
     Dates: start: 20161111

REACTIONS (8)
  - Abnormal behaviour [Unknown]
  - Mania [Recovered/Resolved]
  - Disinhibition [Unknown]
  - Psychomotor hyperactivity [Unknown]
  - Flight of ideas [Unknown]
  - Suicidal ideation [Unknown]
  - Thinking abnormal [Unknown]
  - Speech disorder [Unknown]

NARRATIVE: CASE EVENT DATE: 20160909
